FAERS Safety Report 8525435-7 (Version None)
Quarter: 2012Q3

REPORT INFORMATION
  Report Type: 
  Country: None (occurrence: None)
  Receive Date: 20120710
  Receipt Date: 20120625
  Transmission Date: 20120928
  Serious: Yes (Hospitalization)
  Sender: FDA-Public Use
  Company Number: 1339633

PATIENT
  Age: 74 Year
  Sex: Female

DRUGS (2)
  1. CYCLOPHOSPHAMIDE [Suspect]
     Indication: CHRONIC LYMPHOCYTIC LEUKAEMIA
     Dates: start: 20100304, end: 20101110
  2. FLUDARABINE PHOSPHATE [Suspect]
     Indication: CHRONIC MYELOID LEUKAEMIA
     Dates: start: 20100304, end: 20101110

REACTIONS (5)
  - NEUTROPENIC SEPSIS [None]
  - ULTRASOUND ABDOMEN ABNORMAL [None]
  - HAEMOGLOBIN DECREASED [None]
  - SPLENOMEGALY [None]
  - BLOOD TRIGLYCERIDES INCREASED [None]
